FAERS Safety Report 12280771 (Version 4)
Quarter: 2024Q1

REPORT INFORMATION
  Report Type: Spontaneous
  Country: US (occurrence: US)
  Receive Date: 20160419
  Receipt Date: 20240117
  Transmission Date: 20240409
  Serious: Yes (Other)
  Sender: FDA-Public Use
  Company Number: US-AUROBINDO-AUR-APL-2016-04585

PATIENT
  Age: 66 Year
  Sex: Male

DRUGS (10)
  1. SULFAMETHOXAZOLE\TRIMETHOPRIM [Suspect]
     Active Substance: SULFAMETHOXAZOLE\TRIMETHOPRIM
     Indication: Urinary tract infection
     Dosage: 15.6 MG/KG, UNK
     Route: 065
  2. SULFAMETHOXAZOLE\TRIMETHOPRIM [Suspect]
     Active Substance: SULFAMETHOXAZOLE\TRIMETHOPRIM
     Indication: Prophylaxis
     Dosage: UNK, 2 TABS BY MOUTH EVERY 6 HOURS (15.6 MG/KG/DAY OF TRIMETHOPRIM)
  3. SULFAMETHOXAZOLE\TRIMETHOPRIM [Suspect]
     Active Substance: SULFAMETHOXAZOLE\TRIMETHOPRIM
     Indication: Pneumocystis jirovecii pneumonia
     Dosage: 1.9 MG/KG/DAY/SINGLE STRENGTH TMP-SMX
     Route: 065
     Dates: start: 201304
  4. SULFAMETHOXAZOLE\TRIMETHOPRIM [Suspect]
     Active Substance: SULFAMETHOXAZOLE\TRIMETHOPRIM
     Dosage: TWICE DAILY
     Route: 065
     Dates: start: 201304
  5. ACYCLOVIR [Suspect]
     Active Substance: ACYCLOVIR
     Indication: B-cell lymphoma
     Dosage: LONG-TERM USE
     Route: 065
  6. CYCLOPHOSPHAMIDE [Suspect]
     Active Substance: CYCLOPHOSPHAMIDE
     Indication: B-cell lymphoma
     Dosage: 4 CYCLES
     Route: 065
     Dates: start: 201302
  7. PREDNISOLONE [Suspect]
     Active Substance: PREDNISOLONE
     Indication: B-cell lymphoma
     Dosage: 4 CYCLES
     Route: 065
     Dates: start: 201302
  8. RITUXIMAB [Suspect]
     Active Substance: RITUXIMAB
     Indication: B-cell lymphoma
     Dosage: UNK, 4 CYCLES
     Route: 065
     Dates: start: 201302
  9. EPIRUBICIN [Suspect]
     Active Substance: EPIRUBICIN
     Indication: B-cell lymphoma
     Dosage: 4 CYCLES
     Route: 065
     Dates: start: 201302
  10. VINCRISTINE [Suspect]
     Active Substance: VINCRISTINE
     Indication: B-cell lymphoma
     Dosage: 4 CYCLES
     Route: 065
     Dates: start: 201302

REACTIONS (8)
  - Pneumocystis jirovecii pneumonia [Unknown]
  - Thrombocytopenia [Recovered/Resolved]
  - Myoclonus [Recovered/Resolved]
  - Postural tremor [Recovered/Resolved]
  - Dyspnoea [Recovered/Resolved]
  - Dyskinesia [Recovered/Resolved]
  - Asterixis [Recovered/Resolved]
  - Oxygen consumption increased [Recovered/Resolved]
